FAERS Safety Report 23415601 (Version 1)
Quarter: 2024Q1

REPORT INFORMATION
  Report Type: Report from Study
  Country: DE (occurrence: DE)
  Receive Date: 20240118
  Receipt Date: 20240118
  Transmission Date: 20240409
  Serious: Yes (Life-Threatening, Hospitalization, Other)
  Sender: FDA-Public Use
  Company Number: DE-Accord-400998

PATIENT
  Age: 79 Year
  Sex: Male

DRUGS (7)
  1. METHOTREXATE [Suspect]
     Active Substance: METHOTREXATE
     Indication: Psoriatic arthropathy
  2. ASPIRIN [Concomitant]
     Active Substance: ASPIRIN
  3. RAMIPRIL [Concomitant]
     Active Substance: RAMIPRIL
  4. CANDESARTAN [Concomitant]
     Active Substance: CANDESARTAN
  5. HYDROCHLOROTHIAZIDE [Concomitant]
     Active Substance: HYDROCHLOROTHIAZIDE
  6. TORSEMIDE [Concomitant]
     Active Substance: TORSEMIDE
  7. PANTOPRAZOLE [Concomitant]
     Active Substance: PANTOPRAZOLE

REACTIONS (5)
  - Myelosuppression [Recovered/Resolved]
  - Mucosal inflammation [Recovered/Resolved]
  - Accidental overdose [Unknown]
  - Lung infiltration [Recovered/Resolved]
  - Sepsis [Recovered/Resolved]
